FAERS Safety Report 10346397 (Version 1)
Quarter: 2014Q3

REPORT INFORMATION
  Report Type: Report from Study
  Country: CO (occurrence: CO)
  Receive Date: 20140728
  Receipt Date: 20140728
  Transmission Date: 20150326
  Serious: Yes (Other)
  Sender: FDA-Public Use
  Company Number: CO-ABBVIE-14P-036-1265617-00

PATIENT
  Age: 69 Year
  Sex: Female
  Weight: 50 kg

DRUGS (1)
  1. HUMIRA [Suspect]
     Active Substance: ADALIMUMAB
     Indication: RHEUMATOID ARTHRITIS
     Route: 058
     Dates: start: 20110714, end: 20140629

REACTIONS (8)
  - Eyelid thickening [Recovering/Resolving]
  - Feeling hot [Recovering/Resolving]
  - Eyelid oedema [Recovering/Resolving]
  - Chalazion [Unknown]
  - Secretion discharge [Recovered/Resolved]
  - Erythema of eyelid [Recovering/Resolving]
  - Wound secretion [Recovered/Resolved]
  - Eyelid disorder [Recovering/Resolving]

NARRATIVE: CASE EVENT DATE: 201401
